FAERS Safety Report 8610022-2 (Version None)
Quarter: 2012Q3

REPORT INFORMATION
  Report Type: 
  Country: None (occurrence: None)
  Receive Date: 20120822
  Receipt Date: 20120719
  Transmission Date: 20120928
  Serious: Yes (Hospitalization)
  Sender: FDA-Public Use
  Company Number: US-MSD-1206USA05571

PATIENT

DRUGS (37)
  1. PEG-INTRON [Suspect]
     Indication: HEPATITIS C
  2. BLINDED THERAPY [Suspect]
  3. BLINDED THERAPY [Suspect]
     Dosage: F
     Route: 048
     Dates: start: 20120111, end: 20120404
  4. BLINDED THERAPY [Suspect]
  5. BLINDED THERAPY [Suspect]
     Dosage: H
     Route: 048
     Dates: start: 20120111, end: 20120404
  6. REBETOL [Suspect]
     Dosage: 3 DF, QAM
     Route: 048
     Dates: start: 20120111, end: 20120410
  7. RIBAVIRIN [Suspect]
     Indication: HEPATITIS C
     Dosage: A
     Route: 048
     Dates: start: 20120111, end: 20120404
  8. BLINDED THERAPY [Suspect]
     Dosage: C
     Route: 048
     Dates: start: 20120111, end: 20120404
  9. BLINDED THERAPY [Suspect]
     Dosage: G
     Route: 048
     Dates: start: 20120111, end: 20120404
  10. BLINDED THERAPY [Suspect]
  11. REBETOL [Suspect]
     Indication: HEPATITIS C
     Dosage: 3 DF, QPM
     Route: 048
     Dates: start: 20120111, end: 20120406
  12. BLINDED BOCEPREVIR [Suspect]
     Indication: HEPATITIS C
     Dosage: A
     Route: 048
     Dates: start: 20120111, end: 20120404
  13. PEGINTERFERON ALFA-2B [Suspect]
     Indication: HEPATITIS C
     Dosage: A
     Route: 048
     Dates: start: 20120111, end: 20120404
  14. BLINDED THERAPY [Suspect]
     Dosage: E
     Route: 048
     Dates: start: 20120111, end: 20120404
  15. REBETOL [Suspect]
     Dosage: 2 DF, QPM
     Route: 048
     Dates: start: 20120407, end: 20120624
  16. BLINDED MK-5172 [Suspect]
     Indication: HEPATITIS C
     Dosage: A
     Route: 048
     Dates: start: 20120111, end: 20120404
  17. PLACEBO [Suspect]
     Indication: HEPATITIS C
     Dosage: A
     Route: 048
     Dates: start: 20120111, end: 20120404
  18. BLINDED THERAPY [Suspect]
     Dosage: D
     Route: 048
     Dates: start: 20120111, end: 20120404
  19. REBETOL [Suspect]
     Dosage: 2 DF, QAM
     Route: 048
     Dates: start: 20120501, end: 20120624
  20. PROTONIX [Concomitant]
     Dosage: 10 MG, PRN
     Route: 048
     Dates: start: 20071201
  21. PAXIL [Concomitant]
     Indication: DEPRESSION
  22. BLINDED THERAPY [Suspect]
     Dosage: B
     Route: 048
     Dates: start: 20120111, end: 20120404
  23. REBETOL [Suspect]
     Dosage: 3 DF, QAM
     Route: 048
     Dates: start: 20120417, end: 20120430
  24. PROTONIX [Concomitant]
     Indication: GASTROOESOPHAGEAL REFLUX DISEASE
  25. LISINOPRIL [Concomitant]
     Dosage: 40 MG, QD
     Route: 048
     Dates: start: 20120211
  26. PAXIL [Concomitant]
     Dosage: 40 MG, QD
     Route: 048
     Dates: start: 20120322
  27. BLINDED PRE TRIAL THERAPY [Suspect]
     Indication: HEPATITIS C
     Dosage: A
     Route: 048
     Dates: start: 20120111, end: 20120404
  28. REBETOL [Suspect]
     Dosage: 2 DF, QAM
     Route: 048
     Dates: start: 20120411, end: 20120416
  29. BLINDED THERAPY [Suspect]
     Dosage: 4 DF, TID
     Route: 048
     Dates: start: 20120208, end: 20120624
  30. LISINOPRIL [Concomitant]
     Indication: HYPERTENSION
  31. PEG-INTRON [Suspect]
     Dosage: 0.5 ML, QW
     Route: 048
     Dates: start: 20120110, end: 20120619
  32. BLINDED THERAPY [Suspect]
  33. BLINDED THERAPY [Suspect]
  34. BLINDED THERAPY [Suspect]
  35. BLINDED POST TRIAL THERAPY [Suspect]
     Indication: HEPATITIS C
     Dosage: A
     Route: 048
     Dates: start: 20120111, end: 20120404
  36. BLINDED THERAPY [Suspect]
     Indication: HEPATITIS C
  37. BLINDED THERAPY [Suspect]

REACTIONS (7)
  - BRONCHITIS [None]
  - PYREXIA [None]
  - DYSPNOEA [None]
  - HYPOPHAGIA [None]
  - RENAL FAILURE ACUTE [None]
  - DIARRHOEA [None]
  - METABOLIC ACIDOSIS [None]
